FAERS Safety Report 7776554-4 (Version None)
Quarter: 2011Q3

REPORT INFORMATION
  Report Type: 
  Country: None (occurrence: None)
  Receive Date: 20110922
  Receipt Date: 20110922
  Transmission Date: 20111222
  Serious: Yes (Hospitalization)
  Sender: FDA-Public Use
  Company Number: None

PATIENT
  Sex: Female
  Weight: 55.7 kg

DRUGS (22)
  1. DIPHENHYDRAMINE HCL [Concomitant]
  2. ESOMEPRAZOLE SODIUM [Concomitant]
  3. MAGNESIUM SULFATE [Concomitant]
  4. SODIUM CHLORIDE INJ [Concomitant]
  5. CEFEPIME [Concomitant]
  6. CETUXIMAB [Concomitant]
  7. CITALOPRAM [Concomitant]
  8. PIPERACILLIN AND TAZOBACTAM [Concomitant]
  9. POTASSIUM CHLORIDE [Concomitant]
  10. ERBITUX [Suspect]
     Dosage: 1695 MG
  11. HYDROCORTISONE TOPICAL [Concomitant]
  12. BETAMETHOSONR TOPICAL [Concomitant]
  13. VANCOMYCIN [Concomitant]
  14. FLUOROURACIL [Suspect]
     Dosage: 5130 MG
  15. CIPROFLOXACIN [Concomitant]
  16. ACETAMINOPHEN [Concomitant]
  17. IMIPENEM AND CILASTATIN SODIUM [Concomitant]
  18. LORAZEPAM [Concomitant]
  19. CISPLATIN [Suspect]
     Dosage: 96 MG
  20. METRONIDAZOLE [Concomitant]
  21. ONDANSETRON [Concomitant]
  22. DALTEPARIN SODIUM [Concomitant]

REACTIONS (3)
  - FEBRILE NEUTROPENIA [None]
  - DIARRHOEA [None]
  - VOMITING [None]
